FAERS Safety Report 21343158 (Version 1)
Quarter: 2022Q3

REPORT INFORMATION
  Report Type: Spontaneous
  Country: US (occurrence: US)
  Receive Date: 20220916
  Receipt Date: 20220916
  Transmission Date: 20221026
  Serious: Yes (Other)
  Sender: FDA-Public Use
  Company Number: US-PFIZER INC-PV202200063915

PATIENT

DRUGS (1)
  1. PALBOCICLIB [Suspect]
     Active Substance: PALBOCICLIB
     Dosage: UNK, CYCLIC (FULL DOSE 2 WEEKS ON, 1 WEEK OFF)

REACTIONS (3)
  - Myelosuppression [Unknown]
  - Off label use [Unknown]
  - Product use issue [Unknown]
